FAERS Safety Report 10647588 (Version 9)
Quarter: 2017Q1

REPORT INFORMATION
  Report Type: Spontaneous
  Country: US (occurrence: US)
  Receive Date: 20141211
  Receipt Date: 20170125
  Transmission Date: 20170428
  Serious: Yes (Hospitalization, Other)
  Sender: FDA-Public Use
  Company Number: US-009507513-1412USA005258

PATIENT
  Sex: Female
  Weight: 89.79 kg

DRUGS (7)
  1. PREVACID [Concomitant]
     Active Substance: LANSOPRAZOLE
     Indication: PRODUCT USED FOR UNKNOWN INDICATION
     Dosage: UNK UNK, UNKNOWN
     Route: 065
     Dates: start: 200001, end: 200512
  2. PREDNISONE. [Concomitant]
     Active Substance: PREDNISONE
     Indication: ASTHMA
     Dosage: UNK UNK, UNKNOWN
     Route: 065
     Dates: start: 1987, end: 2015
  3. FOSAMAX [Suspect]
     Active Substance: ALENDRONATE SODIUM
     Indication: OSTEOPOROSIS
     Dosage: 70 MG, QW
     Route: 048
     Dates: start: 1999, end: 200801
  4. THEOPHYLLINE [Concomitant]
     Active Substance: THEOPHYLLINE ANHYDROUS
     Indication: ASTHMA
     Dosage: UNK UNK, UNKNOWN
     Route: 065
     Dates: start: 1994
  5. FOSAMAX PLUS D [Suspect]
     Active Substance: ALENDRONATE SODIUM\CHOLECALCIFEROL
     Indication: OSTEOPOROSIS
     Dosage: 70 MG/2800 IU, QW
     Route: 048
     Dates: start: 200602, end: 20091010
  6. ALENDRONATE SODIUM. [Suspect]
     Active Substance: ALENDRONATE SODIUM
     Indication: OSTEOPOROSIS
     Dosage: 70 MG, QW
     Route: 048
     Dates: start: 200911, end: 201012
  7. FOSAMAX [Suspect]
     Active Substance: ALENDRONATE SODIUM
     Dosage: UNK
     Route: 048
     Dates: start: 1999

REACTIONS (27)
  - Femur fracture [Unknown]
  - Femur fracture [Unknown]
  - Back pain [Not Recovered/Not Resolved]
  - Pain [Not Recovered/Not Resolved]
  - Femur fracture [Recovered/Resolved]
  - Femur fracture [Recovering/Resolving]
  - Rib fracture [Unknown]
  - Anxiety [Unknown]
  - Fracture malunion [Unknown]
  - Arthralgia [Unknown]
  - Fall [Unknown]
  - Asthenia [Unknown]
  - Depression [Unknown]
  - Vulval cancer [Unknown]
  - Multiple fractures [Unknown]
  - Calcium deficiency [Unknown]
  - Femoral neck fracture [Unknown]
  - Vitamin D deficiency [Unknown]
  - Escherichia urinary tract infection [Unknown]
  - Fungal infection [Unknown]
  - Lumbar vertebral fracture [Unknown]
  - Haematoma [Recovering/Resolving]
  - Upper respiratory tract infection [Unknown]
  - Leukocytosis [Unknown]
  - Gait disturbance [Unknown]
  - Neuropathy peripheral [Unknown]
  - Back pain [Unknown]

NARRATIVE: CASE EVENT DATE: 20031219
